FAERS Safety Report 7068732-7 (Version None)
Quarter: 2010Q4

REPORT INFORMATION
  Report Type: 
  Country: None (occurrence: None)
  Receive Date: 20101028
  Receipt Date: 20101021
  Transmission Date: 20110411
  Serious: Yes (Hospitalization)
  Sender: FDA-Public Use
  Company Number: JP-PFIZER INC-2010115530

PATIENT
  Age: 77 Year
  Sex: Female
  Weight: 48.2 kg

DRUGS (2)
  1. ZYVOX [Suspect]
     Indication: STAPHYLOCOCCAL INFECTION
     Dosage: 1200 MG, 1X/DAY
     Route: 041
     Dates: start: 20100909, end: 20100913
  2. VANCOMYCIN [Concomitant]
     Dosage: UNK
     Route: 048
     Dates: start: 20100912

REACTIONS (1)
  - HYPONATRAEMIA [None]
